FAERS Safety Report 6407720-8 (Version None)
Quarter: 2009Q4

REPORT INFORMATION
  Report Type: 
  Country: None (occurrence: None)
  Receive Date: 20091020
  Receipt Date: 20091008
  Transmission Date: 20100525
  Serious: Yes (Disabling)
  Sender: FDA-Public Use
  Company Number: DE-AVENTIS-200912549DE

PATIENT
  Age: 57 Year
  Sex: Male

DRUGS (10)
  1. TAXOTERE [Suspect]
     Route: 041
     Dates: start: 20090723, end: 20090723
  2. FLUOROURACIL [Suspect]
     Route: 041
     Dates: end: 20090723
  3. FOLINIC ACID [Suspect]
     Route: 041
     Dates: end: 20090723
  4. OXALIPLATIN [Suspect]
     Route: 041
     Dates: start: 20090723, end: 20090723
  5. DEXAMETHASONE TAB [Concomitant]
     Indication: DRUG USE FOR UNKNOWN INDICATION
  6. PALONOSETRON [Concomitant]
     Indication: DRUG USE FOR UNKNOWN INDICATION
  7. APREPITANT [Concomitant]
     Indication: DRUG USE FOR UNKNOWN INDICATION
     Dosage: DOSE: 80/125
  8. METOCLOPRAMIDE [Concomitant]
     Indication: DRUG USE FOR UNKNOWN INDICATION
     Dosage: DOSE: NOT REPORTED
  9. CALCIUM GLUCONATE [Concomitant]
     Indication: DRUG USE FOR UNKNOWN INDICATION
     Dosage: DOSE: NOT REPORTED
  10. MAGNESIUM SULFATE [Concomitant]
     Indication: DRUG USE FOR UNKNOWN INDICATION
     Dosage: DOSE: NOT REPORTED

REACTIONS (1)
  - PERONEAL NERVE PALSY [None]
